FAERS Safety Report 7259785-1 (Version None)
Quarter: 2011Q1

REPORT INFORMATION
  Report Type: 
  Country: None (occurrence: None)
  Receive Date: 20110130
  Receipt Date: 20100915
  Transmission Date: 20110831
  Serious: No
  Sender: FDA-Public Use
  Company Number: US-ABBOTT-10P-163-0671119-00

PATIENT
  Age: 53 Year
  Sex: Female

DRUGS (9)
  1. SULFASALAZINE [Concomitant]
     Indication: PRODUCT USED FOR UNKNOWN INDICATION
  2. MULTI-VITAMINS [Concomitant]
     Indication: PRODUCT USED FOR UNKNOWN INDICATION
  3. STRESS B COMPLEX [Concomitant]
     Indication: PRODUCT USED FOR UNKNOWN INDICATION
  4. PAXIL [Concomitant]
     Indication: PRODUCT USED FOR UNKNOWN INDICATION
  5. METHOTREXATE [Concomitant]
     Indication: PRODUCT USED FOR UNKNOWN INDICATION
     Dosage: 7 TABLETS WEEKLY
  6. HUMIRA [Suspect]
     Indication: POLYARTHRITIS
     Dates: start: 20100728
  7. ASCORBIC ACID [Concomitant]
     Indication: PRODUCT USED FOR UNKNOWN INDICATION
  8. GARLIC [Concomitant]
     Indication: PRODUCT USED FOR UNKNOWN INDICATION
  9. LYSCENE [Concomitant]
     Indication: ORAL HERPES

REACTIONS (3)
  - SKIN DISORDER [None]
  - ACNE [None]
  - PRURITUS [None]
